FAERS Safety Report 17744838 (Version 5)
Quarter: 2021Q4

REPORT INFORMATION
  Report Type: Spontaneous
  Country: US (occurrence: US)
  Receive Date: 20200505
  Receipt Date: 20211011
  Transmission Date: 20220303
  Serious: No
  Sender: FDA-Public Use
  Company Number: US-PFIZER INC-2019315679

PATIENT
  Age: 41 Year
  Sex: Male

DRUGS (3)
  1. PRISTIQ EXTENDED-RELEASE [Suspect]
     Active Substance: DESVENLAFAXINE SUCCINATE
     Dosage: 100 MG, 1X/DAY (1 TABLET BY MOUTH EVERY MORNING)
     Route: 048
  2. PRISTIQ EXTENDED-RELEASE [Suspect]
     Active Substance: DESVENLAFAXINE SUCCINATE
     Dosage: 50 MG, 1X/DAY (TAKE 1 TABLET BY MOUTH EVERY MORNING)
     Route: 048
  3. PRISTIQ EXTENDED-RELEASE [Suspect]
     Active Substance: DESVENLAFAXINE SUCCINATE
     Dosage: 150 MG, 1X/DAY (TAKE 1 TABLET BY MOUTH EVERY MORNING WITH PRISTIQ 50 MG TABLET.)

REACTIONS (2)
  - Off label use [Unknown]
  - Anxiety [Unknown]
